FAERS Safety Report 7206142-X (Version None)
Quarter: 2010Q4

REPORT INFORMATION
  Report Type: 
  Country: None (occurrence: None)
  Receive Date: 20101229
  Receipt Date: 20101229
  Transmission Date: 20110411
  Serious: No
  Sender: FDA-Public Use
  Company Number: None

PATIENT
  Age: 63 Year
  Sex: Female

DRUGS (5)
  1. TAXOTERE [Suspect]
     Indication: BREAST CANCER
     Dosage: 115 MG IV DRIP
     Route: 041
     Dates: start: 20101201, end: 20101201
  2. TAXOTERE [Suspect]
  3. DIPHENHYDRAMINE [Concomitant]
  4. DEXAMETHASONE [Concomitant]
  5. GRANISETRON HCL [Concomitant]

REACTIONS (2)
  - PHLEBITIS [None]
  - PRODUCT FORMULATION ISSUE [None]
